FAERS Safety Report 12982037 (Version 2)
Quarter: 2016Q4

REPORT INFORMATION
  Report Type: Report from Study
  Country: None (occurrence: DE)
  Receive Date: 20161129
  Receipt Date: 20161208
  Transmission Date: 20170207
  Serious: Yes (Other)
  Sender: FDA-Public Use
  Company Number: DE-ABBVIE-16K-062-1789309-00

PATIENT
  Sex: Male
  Weight: 118 kg

DRUGS (17)
  1. HUMIRA [Suspect]
     Active Substance: ADALIMUMAB
     Indication: RHEUMATOID ARTHRITIS
     Route: 058
     Dates: start: 20121026, end: 201605
  2. KALINOR RETARD [Concomitant]
     Active Substance: POTASSIUM CHLORIDE
     Indication: PRODUCT USED FOR UNKNOWN INDICATION
     Dates: end: 201605
  3. PREDNISOLONE. [Suspect]
     Active Substance: PREDNISOLONE
     Indication: PRODUCT USED FOR UNKNOWN INDICATION
     Route: 065
     Dates: start: 201211
  4. BISOPROLOL TEVA COMPOUND [Concomitant]
     Indication: PRODUCT USED FOR UNKNOWN INDICATION
     Dosage: 5/12.5 MG
  5. METEX [Suspect]
     Active Substance: METFORMIN HYDROCHLORIDE
     Indication: PRODUCT USED FOR UNKNOWN INDICATION
     Route: 065
     Dates: start: 201511
  6. RUBIEFOL [Concomitant]
     Indication: PRODUCT USED FOR UNKNOWN INDICATION
  7. ALLOBETA [Concomitant]
     Indication: PRODUCT USED FOR UNKNOWN INDICATION
  8. NAPROXEN STADA [Concomitant]
     Indication: PRODUCT USED FOR UNKNOWN INDICATION
  9. ATORVASTATIN 1A PHARMA [Concomitant]
     Indication: PRODUCT USED FOR UNKNOWN INDICATION
  10. DEKRISTOL [Concomitant]
     Active Substance: CHOLECALCIFEROL
     Indication: PRODUCT USED FOR UNKNOWN INDICATION
  11. OMEBETA 40 [Concomitant]
     Indication: PRODUCT USED FOR UNKNOWN INDICATION
     Dosage: 1X1
  12. TORASEMID HEUMANN [Concomitant]
     Indication: PRODUCT USED FOR UNKNOWN INDICATION
  13. RAMIPRIL HEUMANN [Concomitant]
     Indication: PRODUCT USED FOR UNKNOWN INDICATION
  14. CRESTOR [Concomitant]
     Active Substance: ROSUVASTATIN CALCIUM
     Indication: PRODUCT USED FOR UNKNOWN INDICATION
  15. EUTHYROX [Concomitant]
     Active Substance: LEVOTHYROXINE SODIUM
     Indication: PRODUCT USED FOR UNKNOWN INDICATION
  16. ASS CT [Concomitant]
     Indication: PRODUCT USED FOR UNKNOWN INDICATION
  17. HUMIRA [Suspect]
     Active Substance: ADALIMUMAB
     Indication: POLYARTHRITIS

REACTIONS (6)
  - Bone pain [Unknown]
  - Arrhythmia [Recovered/Resolved]
  - Myalgia [Unknown]
  - Atrial fibrillation [Recovered/Resolved]
  - Hypokalaemia [Recovered/Resolved]
  - Enzyme level increased [Unknown]

NARRATIVE: CASE EVENT DATE: 2012
